FAERS Safety Report 10053227 (Version 1)
Quarter: 2014Q2

REPORT INFORMATION
  Report Type: Spontaneous
  Country: FR (occurrence: FR)
  Receive Date: 20140402
  Receipt Date: 20140402
  Transmission Date: 20141212
  Serious: Yes (Death, Hospitalization)
  Sender: FDA-Public Use
  Company Number: FR-GLAXOSMITHKLINE-B0979393A

PATIENT
  Age: 79 Year
  Sex: Female

DRUGS (2)
  1. ARIXTRA [Suspect]
     Indication: ARRHYTHMIA
     Route: 065
  2. COUMADINE [Suspect]
     Indication: ATRIAL FIBRILLATION
     Route: 048

REACTIONS (3)
  - Peritoneal haemorrhage [Fatal]
  - Hypovolaemic shock [Fatal]
  - Off label use [Unknown]
